FAERS Safety Report 4373250-0 (Version None)
Quarter: 2004Q2

REPORT INFORMATION
  Report Type: 
  Country: None (occurrence: None)
  Receive Date: 20040608
  Receipt Date: 20040607
  Transmission Date: 20050107
  Serious: Yes (Other)
  Sender: FDA-Public Use
  Company Number: US-GLAXOSMITHKLINE-A0513639A

PATIENT
  Sex: Female

DRUGS (3)
  1. PAXIL CR [Suspect]
     Indication: GENERALISED ANXIETY DISORDER
     Dosage: 20MG PER DAY
     Route: 048
     Dates: start: 19970101
  2. PAXIL CR [Suspect]
     Dosage: 75MG PER DAY
     Route: 048
     Dates: start: 20040101
  3. NO CONCURRENT MEDICATION [Concomitant]

REACTIONS (4)
  - ANXIETY [None]
  - DRUG INEFFECTIVE [None]
  - SUICIDAL IDEATION [None]
  - WEIGHT DECREASED [None]
